FAERS Safety Report 4283247-7 (Version None)
Quarter: 2004Q1

REPORT INFORMATION
  Report Type: 
  Country: None (occurrence: None)
  Receive Date: 20040129
  Receipt Date: 20040121
  Transmission Date: 20041129
  Serious: Yes (Other)
  Sender: FDA-Public Use
  Company Number: 2003-12-0890

PATIENT
  Age: 40 Year
  Sex: Male

DRUGS (1)
  1. INTRON A [Suspect]
     Indication: METASTATIC RENAL CELL CARCINOMA
     Dosage: 2-10 MU 5X/WK SUBCUTANEO
     Route: 058

REACTIONS (6)
  - ISCHAEMIA [None]
  - RETINAL EXUDATES [None]
  - RETINAL HAEMORRHAGE [None]
  - SCOTOMA [None]
  - VISION BLURRED [None]
  - VISUAL ACUITY REDUCED [None]
